FAERS Safety Report 10622374 (Version 1)
Quarter: 2014Q4

REPORT INFORMATION
  Report Type: Spontaneous
  Country: AU (occurrence: AU)
  Receive Date: 20141203
  Receipt Date: 20141203
  Transmission Date: 20150529
  Serious: Yes (Other)
  Sender: FDA-Public Use
  Company Number: AU-JNJFOC-20141118183

PATIENT
  Sex: Female

DRUGS (12)
  1. NATRILIX [Concomitant]
     Active Substance: INDAPAMIDE
  2. ATENOLOL. [Concomitant]
     Active Substance: ATENOLOL
  3. LANTUS [Concomitant]
     Active Substance: INSULIN GLARGINE
  4. OMEPRAZOLE. [Concomitant]
     Active Substance: OMEPRAZOLE
  5. INVOKANA [Suspect]
     Active Substance: CANAGLIFLOZIN
     Indication: PRODUCT USED FOR UNKNOWN INDICATION
     Route: 048
     Dates: start: 20140525, end: 20141126
  6. NOVORAPID [Concomitant]
     Active Substance: INSULIN ASPART
  7. ASPIRIN. [Concomitant]
     Active Substance: ASPIRIN
  8. PANADEINE FORTE [Concomitant]
     Active Substance: ACETAMINOPHEN\CODEINE PHOSPHATE
  9. CADUET [Concomitant]
     Active Substance: AMLODIPINE BESYLATE\ATORVASTATIN CALCIUM
  10. DIABEX [Concomitant]
     Active Substance: METFORMIN HYDROCHLORIDE
  11. CANDESARTAN [Concomitant]
     Active Substance: CANDESARTAN
  12. CELECOXIB. [Concomitant]
     Active Substance: CELECOXIB

REACTIONS (1)
  - Renal cancer [Unknown]
